FAERS Safety Report 9230064 (Version 1)
Quarter: 2013Q2

REPORT INFORMATION
  Report Type: Spontaneous
  Country: JP (occurrence: JP)
  Receive Date: 20130415
  Receipt Date: 20130415
  Transmission Date: 20140414
  Serious: Yes (Life-Threatening)
  Sender: FDA-Public Use
  Company Number: JP-009507513-1304JPN005793

PATIENT
  Age: 70 Year
  Sex: Male

DRUGS (2)
  1. TEMODAL [Suspect]
     Indication: ANAPLASTIC ASTROCYTOMA
     Dosage: 120 MG, QD
     Route: 048
     Dates: start: 20110312, end: 20110425
  2. BAKTAR [Concomitant]
     Indication: ANTIFUNGAL PROPHYLAXIS
     Dosage: 1 DF, QD
     Route: 048
     Dates: start: 20110312, end: 20110609

REACTIONS (2)
  - Pneumonia cytomegaloviral [Recovering/Resolving]
  - Lymphocyte count decreased [Unknown]
